FAERS Safety Report 5511511-X (Version None)
Quarter: 2007Q4

REPORT INFORMATION
  Report Type: 
  Country: None (occurrence: None)
  Receive Date: 20071109
  Receipt Date: 20071101
  Transmission Date: 20080405
  Serious: Yes (Hospitalization)
  Sender: FDA-Public Use
  Company Number: B0493543A

PATIENT
  Age: 43 Year
  Sex: Female

DRUGS (3)
  1. ZOVIRAX [Suspect]
     Indication: DRUG USE FOR UNKNOWN INDICATION
     Dosage: 400MG UNKNOWN
     Route: 048
     Dates: start: 20070912, end: 20070901
  2. AMITRIPTYLINE HCL [Concomitant]
  3. PRAXILENE [Concomitant]

REACTIONS (5)
  - ALANINE AMINOTRANSFERASE INCREASED [None]
  - BLOOD ALKALINE PHOSPHATASE INCREASED [None]
  - BLOOD BILIRUBIN INCREASED [None]
  - GASTRIC DISORDER [None]
  - LIVER FUNCTION TEST ABNORMAL [None]
